FAERS Safety Report 4369299-4 (Version None)
Quarter: 2004Q2

REPORT INFORMATION
  Report Type: 
  Country: None (occurrence: None)
  Receive Date: 20040525
  Receipt Date: 20040512
  Transmission Date: 20050107
  Serious: Yes (Other)
  Sender: FDA-Public Use
  Company Number: 2004-BP-03347BP

PATIENT
  Age: 56 Year
  Sex: Male

DRUGS (12)
  1. FLOMAX [Suspect]
     Indication: BENIGN PROSTATIC HYPERPLASIA
     Dosage: 0.4 MG (0.4 MG, 1 QD), PO
     Route: 048
     Dates: start: 20040415, end: 20040426
  2. ZESTRIL [Concomitant]
  3. ATENOLOL [Concomitant]
  4. SERZONE [Concomitant]
  5. PRAVACHOL [Concomitant]
  6. COUMADIN [Concomitant]
  7. XANAX [Concomitant]
  8. ZETIA [Concomitant]
  9. PROPYLTHIOURACIL [Concomitant]
  10. CHOLESTYRAMINE [Concomitant]
  11. PALVONE [Concomitant]
  12. METHMOZOLE [Concomitant]

REACTIONS (6)
  - BALANCE DISORDER [None]
  - BLOOD PRESSURE SYSTOLIC INCREASED [None]
  - DIZZINESS [None]
  - HYPOTENSION [None]
  - PROSTATE CANCER [None]
  - VERTIGO [None]
